FAERS Safety Report 10871922 (Version 1)
Quarter: 2015Q1

REPORT INFORMATION
  Report Type: Spontaneous
  Country: FR (occurrence: FR)
  Receive Date: 20150226
  Receipt Date: 20150226
  Transmission Date: 20150721
  Serious: Yes (Hospitalization, Other)
  Sender: FDA-Public Use
  Company Number: FR-PFIZER INC-2015065860

PATIENT
  Age: 38 Year
  Sex: Female

DRUGS (1)
  1. EFFEXOR [Suspect]
     Active Substance: VENLAFAXINE HYDROCHLORIDE
     Indication: DEPRESSION
     Dosage: UNK
     Route: 048
     Dates: end: 20140127

REACTIONS (3)
  - Agranulocytosis [Recovered/Resolved]
  - Herpes simplex [Unknown]
  - Stenotrophomonas infection [Recovering/Resolving]

NARRATIVE: CASE EVENT DATE: 20140127
